FAERS Safety Report 4597139-7 (Version None)
Quarter: 2005Q1

REPORT INFORMATION
  Report Type: 
  Country: None (occurrence: None)
  Receive Date: 20050302
  Receipt Date: 20050224
  Transmission Date: 20050727
  Serious: Yes (Death, Hospitalization, Other)
  Sender: FDA-Public Use
  Company Number: 05-02-0294

PATIENT
  Age: 27 Year
  Sex: Female

DRUGS (2)
  1. MISOPROSTOL [Suspect]
     Indication: ABORTION INDUCED
     Dosage: 800UG VAGINAL
     Route: 067
     Dates: start: 20010825, end: 20010827
  2. MIFEPRISTONE [Suspect]
     Indication: ABORTION INDUCED
     Dosage: 200MG ORAL
     Route: 048
     Dates: start: 20010823, end: 20010823

REACTIONS (25)
  - ASCITES [None]
  - BACTERIAL INFECTION [None]
  - BLOOD ALBUMIN DECREASED [None]
  - BLOOD CALCIUM DECREASED [None]
  - BLOOD POTASSIUM DECREASED [None]
  - BLOOD SODIUM DECREASED [None]
  - CARDIAC ARREST [None]
  - CLOSTRIDIAL INFECTION [None]
  - CLOSTRIDIUM DIFFICILE SEPSIS [None]
  - CULTURE POSITIVE [None]
  - DEHYDRATION [None]
  - DIZZINESS [None]
  - ENDOMETRITIS [None]
  - FULL BLOOD COUNT ABNORMAL [None]
  - GASTRITIS HAEMORRHAGIC [None]
  - MULTI-ORGAN FAILURE [None]
  - NAUSEA [None]
  - NECROSIS [None]
  - OXYGEN SATURATION DECREASED [None]
  - PALPITATIONS [None]
  - PEPTOSTREPTOCOCCUS INFECTION [None]
  - PLEURAL EFFUSION [None]
  - POST PROCEDURAL COMPLICATION [None]
  - SEPTIC SHOCK [None]
  - STREPTOCOCCAL INFECTION [None]
